FAERS Safety Report 8107058-7 (Version None)
Quarter: 2012Q1

REPORT INFORMATION
  Report Type: 
  Country: None (occurrence: None)
  Receive Date: 20120202
  Receipt Date: 20120127
  Transmission Date: 20120608
  Serious: Yes (Hospitalization)
  Sender: FDA-Public Use
  Company Number: US-PFIZER INC-2012025808

PATIENT
  Sex: Female

DRUGS (2)
  1. LIPITOR [Suspect]
     Dosage: 20 MG, (TAKE ONE QHS)
  2. ZOLOFT [Suspect]
     Dosage: 100 MG, 1X/DAY (TAKE ONE DAILY)

REACTIONS (1)
  - SURGERY [None]
